FAERS Safety Report 22180850 (Version 2)
Quarter: 2023Q2

REPORT INFORMATION
  Report Type: Other
  Country: GB (occurrence: GB)
  Receive Date: 20230406
  Receipt Date: 20230413
  Transmission Date: 20230721
  Serious: Yes (Other)
  Sender: FDA-Public Use
  Company Number: GB-HORIZON THERAPEUTICS-HZN-2023-002541

PATIENT

DRUGS (3)
  1. RAVICTI [Suspect]
     Active Substance: GLYCEROL PHENYLBUTYRATE
     Indication: Urea cycle disorder
     Dosage: UNK
     Route: 065
  2. ARGININE [Concomitant]
     Active Substance: ARGININE
     Indication: Product used for unknown indication
  3. SODIUM BENZOATE [Concomitant]
     Active Substance: SODIUM BENZOATE
     Indication: Product used for unknown indication

REACTIONS (1)
  - Epilepsy [Not Recovered/Not Resolved]
